FAERS Safety Report 9298473 (Version 3)
Quarter: 2013Q3

REPORT INFORMATION
  Report Type: Spontaneous
  Country: US (occurrence: US)
  Receive Date: 20130520
  Receipt Date: 20130712
  Transmission Date: 20140515
  Serious: Yes (Hospitalization, Other)
  Sender: FDA-Public Use
  Company Number: US-B.I. PHARMACEUTICALS,INC./RIDGEFIELD-2013-BI-13588PF

PATIENT
  Sex: Male
  Weight: 83.01 kg

DRUGS (10)
  1. SPIRIVA [Suspect]
     Indication: CHRONIC OBSTRUCTIVE PULMONARY DISEASE
     Dosage: 18 MCG
     Route: 055
  2. NORVASC [Suspect]
     Indication: HYPERTENSION
     Dosage: 10 MG
     Route: 048
     Dates: end: 20121008
  3. NORVASC [Suspect]
     Dosage: 10 MG
     Route: 048
     Dates: end: 201211
  4. UNSPECIFIED MEDICATION [Concomitant]
     Indication: CHRONIC OBSTRUCTIVE PULMONARY DISEASE
  5. LASIX [Concomitant]
     Indication: HYPERTENSION
     Dosage: 10 MG
  6. DIGOXIN [Concomitant]
     Indication: ATRIAL FIBRILLATION
     Dosage: 1.25 MG
  7. LISINOPRIL [Concomitant]
     Indication: HYPERTENSION
     Dosage: 5 MG
  8. ALBUTEROL [Concomitant]
     Indication: CHRONIC OBSTRUCTIVE PULMONARY DISEASE
     Dosage: 1 PUF
  9. LORATADINE [Concomitant]
     Indication: HYPERSENSITIVITY
     Dosage: 10 MG
  10. FLONASE [Concomitant]
     Indication: HYPERSENSITIVITY
     Dosage: 2 SPRAYS DAILY

REACTIONS (5)
  - Lung carcinoma cell type unspecified stage III [Not Recovered/Not Resolved]
  - Bronchitis [Not Recovered/Not Resolved]
  - Pneumonia [Recovered/Resolved]
  - Chronic obstructive pulmonary disease [Unknown]
  - Malaise [Unknown]
